FAERS Safety Report 25646557 (Version 1)
Quarter: 2025Q3

REPORT INFORMATION
  Report Type: Spontaneous
  Country: JP (occurrence: JP)
  Receive Date: 20250805
  Receipt Date: 20250805
  Transmission Date: 20251020
  Serious: Yes (Other)
  Sender: MERCK SHARP & DOHME LLC
  Company Number: JP-009507513-2315099

PATIENT
  Age: 35 Year
  Sex: Female

DRUGS (2)
  1. KEYTRUDA [Suspect]
     Active Substance: PEMBROLIZUMAB
     Indication: Triple negative breast cancer
     Dosage: 200MG ONCE EVERY 3 WEEKS
     Route: 041
     Dates: start: 202501, end: 202504
  2. PACLITAXEL [Suspect]
     Active Substance: PACLITAXEL
     Indication: Triple negative breast cancer
     Dates: start: 202501, end: 202504

REACTIONS (4)
  - Malignant neoplasm progression [Unknown]
  - Tumour hyperprogression [Unknown]
  - Therapy partial responder [Unknown]
  - Tumour pseudoprogression [Unknown]

NARRATIVE: CASE EVENT DATE: 20250101
